FAERS Safety Report 13994534 (Version 1)
Quarter: 2017Q3

REPORT INFORMATION
  Report Type: Spontaneous
  Country: IT (occurrence: IT)
  Receive Date: 20170920
  Receipt Date: 20170920
  Transmission Date: 20171128
  Serious: Yes (Other)
  Sender: FDA-Public Use
  Company Number: IT-BAXTER-2017BAX032873

PATIENT
  Age: 43 Year
  Sex: Female
  Weight: 55 kg

DRUGS (4)
  1. UROMITEXAN 400 MG/ 4ML [Suspect]
     Active Substance: MESNA
     Indication: SARCOMA
     Route: 042
     Dates: start: 20170905, end: 20170905
  2. HOLOXAN [Suspect]
     Active Substance: IFOSFAMIDE
     Indication: SARCOMA
     Route: 042
     Dates: start: 20170905, end: 20170905
  3. MYOCET [Suspect]
     Active Substance: DOXORUBICIN
     Indication: SARCOMA
     Dosage: DOSE INTERRUPTED
     Route: 042
     Dates: start: 20170905
  4. MYOCET [Suspect]
     Active Substance: DOXORUBICIN
     Dosage: DOSE RE-INTRODUCED, INFUSION, TOTAL DOSE ADMINISTERED WAS 80 MG.
     Route: 042
     Dates: end: 20170905

REACTIONS (5)
  - Sense of oppression [Recovered/Resolved]
  - Presyncope [Recovered/Resolved]
  - Hypotension [Recovered/Resolved]
  - Chest discomfort [Recovered/Resolved]
  - Asthenia [Recovering/Resolving]

NARRATIVE: CASE EVENT DATE: 20170905
